FAERS Safety Report 8436803-6 (Version None)
Quarter: 2012Q2

REPORT INFORMATION
  Report Type: 
  Country: None (occurrence: None)
  Receive Date: 20120614
  Receipt Date: 20120606
  Transmission Date: 20120825
  Serious: Yes (Hospitalization)
  Sender: FDA-Public Use
  Company Number: US-CELGENEUS-163-21880-12060770

PATIENT
  Age: 71 Year
  Sex: Male
  Weight: 98.064 kg

DRUGS (1)
  1. REVLIMID [Suspect]
     Indication: MULTIPLE MYELOMA
     Dosage: 25 MILLIGRAM
     Route: 048
     Dates: start: 20110728, end: 20111218

REACTIONS (5)
  - ANAEMIA [None]
  - HYPOTENSION [None]
  - PULMONARY EMBOLISM [None]
  - SYNCOPE [None]
  - ARRHYTHMIA [None]
